FAERS Safety Report 19285042 (Version 2)
Quarter: 2021Q3

REPORT INFORMATION
  Report Type: Report from Study
  Country: DE (occurrence: DE)
  Receive Date: 20210521
  Receipt Date: 20210929
  Transmission Date: 20211014
  Serious: Yes (Other)
  Sender: FDA-Public Use
  Company Number: DE-CELGENEUS-DEU-20200708093

PATIENT
  Age: 32 Year
  Sex: Female
  Weight: 98 kg

DRUGS (6)
  1. ABRAXANE [Suspect]
     Active Substance: PACLITAXEL
     Indication: BREAST CANCER
     Dosage: Q1W X6
     Route: 041
     Dates: start: 20190818, end: 20190920
  2. BETAMETHASONE DIHYDROGEN PHOSPHATE. [Concomitant]
     Active Substance: BETAMETHASONE DIHYDROGEN PHOSPHATE
     Indication: PRODUCT USED FOR UNKNOWN INDICATION
     Route: 065
     Dates: start: 20210119, end: 20210119
  3. EPIRUBICIN [Suspect]
     Active Substance: EPIRUBICIN
     Indication: BREAST CANCER
     Route: 065
     Dates: start: 20190927, end: 20191108
  4. CYCLOPHOSPHAMIDE. [Suspect]
     Active Substance: CYCLOPHOSPHAMIDE
     Indication: BREAST CANCER
     Route: 065
     Dates: start: 20190927, end: 20191108
  5. CAPECITABINE. [Concomitant]
     Active Substance: CAPECITABINE
     Indication: BREAST CANCER
     Route: 041
     Dates: start: 20200306, end: 20200529
  6. DEXAMETHASONE. [Concomitant]
     Active Substance: DEXAMETHASONE
     Indication: PROPHYLAXIS OF NAUSEA AND VOMITING
     Route: 065
     Dates: start: 20190818, end: 20191108

REACTIONS (3)
  - Pregnancy with contraceptive device [Unknown]
  - Gestational diabetes [Unknown]
  - Pregnancy [Unknown]

NARRATIVE: CASE EVENT DATE: 202006
